FAERS Safety Report 16242816 (Version 1)
Quarter: 2019Q2

REPORT INFORMATION
  Report Type: Spontaneous
  Country: DE (occurrence: DE)
  Receive Date: 20190426
  Receipt Date: 20190426
  Transmission Date: 20190711
  Serious: Yes (Hospitalization)
  Sender: FDA-Public Use
  Company Number: DE-CELGENEUS-DEU-20190405772

PATIENT
  Age: 77 Year
  Sex: Male
  Weight: 104.7 kg

DRUGS (6)
  1. CARVEDIOL [Concomitant]
     Active Substance: CARVEDILOL
     Indication: RESPIRATORY RATE INCREASED
     Dosage: 25 MILLIGRAM
     Route: 065
  2. AZACITIDINE. [Suspect]
     Active Substance: AZACITIDINE
     Indication: CHRONIC MYELOMONOCYTIC LEUKAEMIA
     Route: 050
     Dates: start: 20190408, end: 20190409
  3. RAMIPRIL. [Concomitant]
     Active Substance: RAMIPRIL
     Indication: RESPIRATORY RATE INCREASED
     Dosage: 5 MILLIGRAM
     Route: 065
  4. VITAMIN B12 [Concomitant]
     Active Substance: CYANOCOBALAMIN
     Indication: ANAEMIA
     Route: 065
  5. MOVICOL [Concomitant]
     Active Substance: POLYETHYLENE GLYCOL 3350\POTASSIUM CHLORIDE\SODIUM BICARBONATE\SODIUM CHLORIDE
     Indication: CONSTIPATION
     Dosage: DOSE NOT PROVIDED
     Route: 065
  6. FOLIC ACID. [Concomitant]
     Active Substance: FOLIC ACID
     Indication: ANAEMIA
     Dosage: 5 MILLIGRAM
     Route: 065

REACTIONS (2)
  - Injection site erythema [Recovered/Resolved]
  - Lip swelling [Recovered/Resolved]

NARRATIVE: CASE EVENT DATE: 20190410
